FAERS Safety Report 9031013 (Version 2)
Quarter: 2013Q1

REPORT INFORMATION
  Report Type: Spontaneous
  Country: GB (occurrence: GB)
  Receive Date: 20130123
  Receipt Date: 20130205
  Transmission Date: 20140127
  Serious: Yes (Hospitalization)
  Sender: FDA-Public Use
  Company Number: PHHY2013GB005377

PATIENT
  Age: 76 Year
  Sex: Female

DRUGS (2)
  1. LORATADINE [Suspect]
     Indication: PRURITUS
     Dosage: 10 MG, UNK
     Route: 048
     Dates: start: 20130106, end: 20130108
  2. HEDRIN [Suspect]
     Indication: LICE INFESTATION
     Dosage: UNK UKN, UNK
     Route: 061
     Dates: start: 20130104, end: 20130106

REACTIONS (5)
  - Hypersensitivity [Recovering/Resolving]
  - Swelling face [Recovering/Resolving]
  - Ear swelling [Recovering/Resolving]
  - Pain [Recovering/Resolving]
  - Pruritus [Recovering/Resolving]
